FAERS Safety Report 9602994 (Version 3)
Quarter: 2013Q4

REPORT INFORMATION
  Report Type: Report from Study
  Country: US (occurrence: US)
  Receive Date: 20131007
  Receipt Date: 20131121
  Transmission Date: 20140711
  Serious: Yes (Death, Hospitalization)
  Sender: FDA-Public Use
  Company Number: US-ACTELION-A-NJ2013-88122

PATIENT
  Age: 77 Year
  Sex: Male

DRUGS (16)
  1. TRACLEER [Suspect]
     Indication: PULMONARY ARTERIAL HYPERTENSION
     Dosage: 125 MG, BID
     Route: 048
     Dates: start: 20110615, end: 20130918
  2. TRACLEER [Suspect]
     Dosage: 62.5 MG, BID
     Route: 048
     Dates: start: 20110516
  3. ASA [Concomitant]
  4. ADVAIR [Concomitant]
  5. PRAVASTATIN [Concomitant]
  6. DUONEB [Concomitant]
  7. BENZONATATE [Concomitant]
  8. LASIX [Concomitant]
  9. METOPROLOL [Concomitant]
  10. DILAUDID [Concomitant]
  11. CLONOPIN [Concomitant]
  12. ALLOPURINOL [Concomitant]
  13. OXYGEN [Concomitant]
  14. AMIODARONE [Concomitant]
  15. PROTONIX [Concomitant]
  16. PROAIR [Concomitant]

REACTIONS (3)
  - Acute respiratory failure [Fatal]
  - Cardiac failure congestive [Fatal]
  - Oedema peripheral [Recovering/Resolving]
